FAERS Safety Report 13093050 (Version 1)
Quarter: 2017Q1

REPORT INFORMATION
  Report Type: Spontaneous
  Country: US (occurrence: US)
  Receive Date: 20170105
  Receipt Date: 20170105
  Transmission Date: 20170428
  Serious: Yes (Disabling, Other)
  Sender: FDA-Public Use
  Company Number: None

PATIENT
  Age: 76 Year
  Sex: Male
  Weight: 56.25 kg

DRUGS (3)
  1. NEUPRO [Suspect]
     Active Substance: ROTIGOTINE
     Indication: PARKINSON^S DISEASE
     Route: 062
     Dates: start: 20161224, end: 20161228
  2. ECOSPIRIN [Concomitant]
     Active Substance: ASPIRIN
  3. CALCIUM [Concomitant]
     Active Substance: CALCIUM

REACTIONS (3)
  - Amnesia [None]
  - Hypersomnia [None]
  - Asthenia [None]

NARRATIVE: CASE EVENT DATE: 20161228
